FAERS Safety Report 8617118-X (Version None)
Quarter: 2012Q3

REPORT INFORMATION
  Report Type: 
  Country: None (occurrence: None)
  Receive Date: 20120823
  Receipt Date: 20120821
  Transmission Date: 20120928
  Serious: No
  Sender: FDA-Public Use
  Company Number: US-PFIZER INC-2012189434

PATIENT
  Age: 84 Year
  Sex: Male
  Weight: 72.562 kg

DRUGS (2)
  1. GABAPENTIN [Suspect]
     Indication: HERPES ZOSTER
     Dosage: 300 MG, 3X/DAY
     Dates: start: 20110101
  2. GABAPENTIN [Suspect]
     Indication: MIGRAINE
     Dosage: 100 MG, 3X/DAY
     Dates: start: 20120701

REACTIONS (2)
  - PARAESTHESIA [None]
  - OEDEMA PERIPHERAL [None]
